FAERS Safety Report 14265379 (Version 1)
Quarter: 2017Q4

REPORT INFORMATION
  Report Type: Spontaneous
  Country: US (occurrence: US)
  Receive Date: 20171208
  Receipt Date: 20171208
  Transmission Date: 20180321
  Serious: No
  Sender: FDA-Public Use
  Company Number: US-LEXICON PHARMACEUTICALS, INC-17-1606-00764

PATIENT
  Age: 63 Year
  Sex: Male

DRUGS (12)
  1. SANDOSTATIN LAR DEPOT [Concomitant]
     Active Substance: OCTREOTIDE ACETATE
  2. CIALIS [Concomitant]
     Active Substance: TADALAFIL
  3. PROCHLORPERAZINE. [Concomitant]
     Active Substance: PROCHLORPERAZINE
  4. ZYRTEC [Concomitant]
     Active Substance: CETIRIZINE HYDROCHLORIDE
  5. RANITIDINE. [Concomitant]
     Active Substance: RANITIDINE
  6. KADIAN [Concomitant]
     Active Substance: MORPHINE SULFATE
  7. VITAMIN B12 [Concomitant]
     Active Substance: CYANOCOBALAMIN
  8. CALCIUM CITRATE [Concomitant]
     Active Substance: CALCIUM CITRATE
  9. ZOFRAN [Concomitant]
     Active Substance: ONDANSETRON HYDROCHLORIDE
  10. TELOTRISTAT ETHYL [Suspect]
     Active Substance: TELOTRISTAT ETHYL
     Indication: NEUROENDOCRINE TUMOUR
     Route: 048
     Dates: start: 20170620
  11. AMLODIPINE [Concomitant]
     Active Substance: AMLODIPINE BESYLATE
  12. OXYCODONE [Concomitant]
     Active Substance: OXYCODONE

REACTIONS (2)
  - Off label use [Unknown]
  - Constipation [Unknown]

NARRATIVE: CASE EVENT DATE: 20170620
